FAERS Safety Report 4296979-1 (Version None)
Quarter: 2004Q1

REPORT INFORMATION
  Report Type: 
  Country: None (occurrence: None)
  Receive Date: 20040213
  Receipt Date: 20040129
  Transmission Date: 20041129
  Serious: Yes (Hospitalization)
  Sender: FDA-Public Use
  Company Number: CA-SHR-04-020456

PATIENT
  Age: 51 Year
  Sex: Female

DRUGS (1)
  1. BETASERON [Suspect]
     Indication: MULTIPLE SCLEROSIS
     Dosage: 8 MIU , EVERY 2D, SUBCUTANEOUS
     Route: 058
     Dates: start: 19991101

REACTIONS (6)
  - ABDOMINAL DISCOMFORT [None]
  - ABDOMINAL MASS [None]
  - DIARRHOEA [None]
  - PAIN [None]
  - PYREXIA [None]
  - VOMITING PROJECTILE [None]
